FAERS Safety Report 24887404 (Version 2)
Quarter: 2025Q1

REPORT INFORMATION
  Report Type: Spontaneous
  Country: US (occurrence: US)
  Receive Date: 20250127
  Receipt Date: 20250310
  Transmission Date: 20250409
  Serious: Yes (Life-Threatening, Hospitalization)
  Sender: NOVO NORDISK
  Company Number: US-NOVOPROD-1351879

PATIENT
  Age: 47 Year
  Sex: Female

DRUGS (1)
  1. TRESIBA [Suspect]
     Active Substance: INSULIN DEGLUDEC
     Indication: Type 1 diabetes mellitus
     Route: 058
     Dates: start: 2022

REACTIONS (3)
  - Diabetic ketoacidosis [Recovered/Resolved]
  - Incorrect dose administered by device [Unknown]
  - Device defective [Unknown]

NARRATIVE: CASE EVENT DATE: 20240101
